FAERS Safety Report 19575145 (Version 2)
Quarter: 2022Q3

REPORT INFORMATION
  Report Type: Report from Study
  Country: US (occurrence: US)
  Receive Date: 20210719
  Receipt Date: 20220713
  Transmission Date: 20221026
  Serious: No
  Sender: FDA-Public Use
  Company Number: US-VANDA PHARMACEUTICALS, INC-2021TASUS004665

PATIENT
  Sex: Female

DRUGS (1)
  1. HETLIOZ [Suspect]
     Active Substance: TASIMELTEON
     Indication: Product used for unknown indication
     Dosage: 20 MILLIGRAM, QD
     Route: 048
     Dates: start: 20200903

REACTIONS (7)
  - Sleep disorder [Unknown]
  - Fatigue [Unknown]
  - Disturbance in attention [Unknown]
  - Discomfort [Unknown]
  - Vaginal cyst [Unknown]
  - Somnolence [Unknown]
  - Product dose omission issue [Unknown]
